FAERS Safety Report 7082502-5 (Version None)
Quarter: 2010Q4

REPORT INFORMATION
  Report Type: 
  Country: None (occurrence: None)
  Receive Date: 20101104
  Receipt Date: 20101022
  Transmission Date: 20110411
  Serious: Yes (Hospitalization)
  Sender: FDA-Public Use
  Company Number: ES-RANBAXY-2010RR-38138

PATIENT
  Age: 64 Year
  Sex: Male

DRUGS (3)
  1. AMOXICILLIN [Suspect]
     Dosage: UNK
     Route: 048
  2. ASPIRIN [Concomitant]
  3. FENITOINE [Concomitant]

REACTIONS (1)
  - KOUNIS SYNDROME [None]
